FAERS Safety Report 6827657-X (Version None)
Quarter: 2010Q3

REPORT INFORMATION
  Report Type: 
  Country: None (occurrence: None)
  Receive Date: 20100709
  Receipt Date: 20070330
  Transmission Date: 20110219
  Serious: No
  Sender: FDA-Public Use
  Company Number: US-PFIZER INC-2007005908

PATIENT
  Sex: Female

DRUGS (3)
  1. CHANTIX [Suspect]
  2. PREMARIN [Concomitant]
  3. FLEXERIL [Concomitant]

REACTIONS (3)
  - DEPRESSION [None]
  - NAUSEA [None]
  - NIGHTMARE [None]
